FAERS Safety Report 13346794 (Version 1)
Quarter: 2017Q1

REPORT INFORMATION
  Report Type: Spontaneous
  Country: US (occurrence: US)
  Receive Date: 20170317
  Receipt Date: 20170317
  Transmission Date: 20170428
  Serious: No
  Sender: FDA-Public Use
  Company Number: US-PERRIGO-16US001517

PATIENT
  Age: 45 Year
  Sex: Male
  Weight: 79.37 kg

DRUGS (1)
  1. NICOTINE POLACRILEX [Suspect]
     Active Substance: NICOTINE
     Indication: SMOKING CESSATION THERAPY
     Dosage: 4 MG, 5 TO 7 TIMES DAILY
     Route: 002
     Dates: start: 201601, end: 20160205

REACTIONS (2)
  - Vomiting [Recovered/Resolved]
  - Dyspepsia [Recovering/Resolving]

NARRATIVE: CASE EVENT DATE: 20160202
